FAERS Safety Report 6674229-6 (Version None)
Quarter: 2010Q2

REPORT INFORMATION
  Report Type: 
  Country: None (occurrence: None)
  Receive Date: 20100407
  Receipt Date: 20051228
  Transmission Date: 20101027
  Serious: Yes (Hospitalization, Disabling)
  Sender: FDA-Public Use
  Company Number: GBPFL-S-20050016

PATIENT
  Age: 48 Year
  Sex: Female

DRUGS (8)
  1. NAVELBINE [Suspect]
     Indication: BREAST CANCER METASTATIC
     Dosage: 25 MG/M2 DAILY IV
     Route: 042
  2. PREGABALIN [Suspect]
     Indication: BREAST CANCER METASTATIC
     Dosage: 75 MG DAILY
  3. CODALAX [Concomitant]
  4. GLUCOPHAGE [Concomitant]
  5. ASPIRIN [Concomitant]
  6. LANSOPRAZOLE [Concomitant]
  7. CIPRAMIL [Concomitant]
  8. HYDROMORPHONE HCL [Concomitant]

REACTIONS (3)
  - BLINDNESS [None]
  - DRUG TOXICITY [None]
  - MALIGNANT NEOPLASM PROGRESSION [None]
